FAERS Safety Report 15742465 (Version 3)
Quarter: 2021Q1

REPORT INFORMATION
  Report Type: Spontaneous
  Country: US (occurrence: US)
  Receive Date: 20181219
  Receipt Date: 20210303
  Transmission Date: 20210419
  Serious: Yes (Other)
  Sender: FDA-Public Use
  Company Number: PHEH2018US053502

PATIENT
  Sex: Female
  Weight: 82.09 kg

DRUGS (1)
  1. TASIGNA [Suspect]
     Active Substance: NILOTINIB
     Indication: CHRONIC MYELOID LEUKAEMIA
     Dosage: UNK
     Route: 065
     Dates: start: 201102, end: 201801

REACTIONS (16)
  - Cardiovascular disorder [Unknown]
  - Neuropathy peripheral [Unknown]
  - Colitis [Unknown]
  - Pain [Unknown]
  - Injury [Unknown]
  - Depression [Unknown]
  - Peripheral vascular disorder [Unknown]
  - Hypertension [Unknown]
  - Emotional distress [Unknown]
  - Gangrene [Unknown]
  - Cerebrovascular accident [Unknown]
  - Anxiety [Unknown]
  - Cellulitis [Unknown]
  - Peripheral arterial occlusive disease [Unknown]
  - Arteriosclerosis [Unknown]
  - Intermittent claudication [Unknown]
